FAERS Safety Report 11381555 (Version 3)
Quarter: 2015Q4

REPORT INFORMATION
  Report Type: Spontaneous
  Country: JP (occurrence: JP)
  Receive Date: 20150814
  Receipt Date: 20151118
  Transmission Date: 20160304
  Serious: Yes (Hospitalization, Other)
  Sender: FDA-Public Use
  Company Number: JP-PFIZER INC-2015266800

PATIENT
  Age: 58 Year
  Sex: Male
  Weight: 64 kg

DRUGS (17)
  1. CAMPTO [Suspect]
     Active Substance: IRINOTECAN
     Dosage: 210 MG, 1X/DAY
     Route: 041
     Dates: start: 20141217, end: 20141217
  2. ELPLAT [Suspect]
     Active Substance: OXALIPLATIN
     Dosage: 150 MG, 1X/DAY
     Route: 041
     Dates: start: 20150121, end: 20150121
  3. ELPLAT [Suspect]
     Active Substance: OXALIPLATIN
     Dosage: 150 MG, 1X/DAY
     Route: 041
     Dates: start: 20150218, end: 20150218
  4. CAMPTO [Suspect]
     Active Substance: IRINOTECAN
     Dosage: 210 MG, 1X/DAY
     Route: 041
     Dates: start: 20150204, end: 20150204
  5. ELPLAT [Suspect]
     Active Substance: OXALIPLATIN
     Dosage: 150 MG, 1X/DAY
     Route: 041
     Dates: start: 20150204, end: 20150204
  6. CAMPTO [Suspect]
     Active Substance: IRINOTECAN
     Dosage: 210 MG, 1X/DAY
     Route: 041
     Dates: start: 20141203, end: 20141203
  7. CAMPTO [Suspect]
     Active Substance: IRINOTECAN
     Dosage: 210 MG, 1X/DAY
     Route: 041
     Dates: start: 20150107, end: 20150107
  8. ELPLAT [Suspect]
     Active Substance: OXALIPLATIN
     Dosage: 150 MG, 1X/DAY
     Route: 041
     Dates: start: 20141217, end: 20141217
  9. ELPLAT [Suspect]
     Active Substance: OXALIPLATIN
     Indication: PANCREATIC CARCINOMA
     Dosage: 84.7 MG/M2, 1X/DAY (150 MG/BODY)
     Route: 041
     Dates: start: 20141105, end: 20141105
  10. ELPLAT [Suspect]
     Active Substance: OXALIPLATIN
     Dosage: 150 MG, 1X/DAY
     Route: 041
     Dates: start: 20141203, end: 20141203
  11. ELPLAT [Suspect]
     Active Substance: OXALIPLATIN
     Dosage: 150 MG, 1X/DAY
     Route: 041
     Dates: start: 20150107, end: 20150107
  12. 5-FU [Concomitant]
     Active Substance: FLUOROURACIL
     Indication: PANCREATIC CARCINOMA
     Dosage: UNK, CYCLIC (4240 MG/BODY/D1-2)
     Dates: start: 20141105, end: 20150304
  13. ELPLAT [Suspect]
     Active Substance: OXALIPLATIN
     Dosage: 150 MG, 1X/DAY
     Route: 041
     Dates: start: 20150304, end: 20150304
  14. LEVOFOLINATE CALCIUM [Concomitant]
     Active Substance: LEUCOVORIN CALCIUM
     Indication: PANCREATIC CARCINOMA
     Dosage: 197.5 MG/M2, CYCLIC (350 MG/BODY)
     Dates: start: 20141105, end: 20150304
  15. CAMPTO [Suspect]
     Active Substance: IRINOTECAN
     Indication: PANCREATIC CARCINOMA
     Dosage: 149.5 MG/M2, 1X/DAY (265 MG/BODY)
     Route: 041
     Dates: start: 20141105, end: 20141105
  16. CAMPTO [Suspect]
     Active Substance: IRINOTECAN
     Dosage: 210 MG, 1X/DAY
     Route: 041
     Dates: start: 20150121, end: 20150121
  17. CAMPTO [Suspect]
     Active Substance: IRINOTECAN
     Dosage: 210 MG, 1X/DAY
     Route: 041
     Dates: start: 20150218, end: 20150218

REACTIONS (14)
  - Alanine aminotransferase increased [Recovering/Resolving]
  - Fatigue [Recovered/Resolved]
  - Vomiting [Recovered/Resolved]
  - Pyrexia [Not Recovered/Not Resolved]
  - Peripheral motor neuropathy [Unknown]
  - Aspartate aminotransferase increased [Recovered/Resolved]
  - White blood cell count decreased [Recovered/Resolved]
  - Biliary tract infection [Unknown]
  - Decreased appetite [Recovering/Resolving]
  - Peripheral sensory neuropathy [Not Recovered/Not Resolved]
  - Nausea [Recovered/Resolved]
  - Blood bilirubin increased [Recovered/Resolved]
  - Neutrophil count decreased [Recovered/Resolved]
  - Haemoglobin decreased [Not Recovered/Not Resolved]

NARRATIVE: CASE EVENT DATE: 20141119
